FAERS Safety Report 15349423 (Version 1)
Quarter: 2018Q3

REPORT INFORMATION
  Report Type: Spontaneous
  Country: CN (occurrence: CN)
  Receive Date: 20180904
  Receipt Date: 20180904
  Transmission Date: 20181010
  Serious: Yes (Other)
  Sender: FDA-Public Use
  Company Number: CN-BAYER-2018-164169

PATIENT
  Age: 39 Year
  Sex: Male

DRUGS (3)
  1. BROMHEXIN [Suspect]
     Active Substance: BROMHEXINE
     Indication: SPUTUM ABNORMAL
     Dosage: 4 MG, QD
     Route: 041
     Dates: start: 20180702, end: 20180704
  2. AVELOX [Suspect]
     Active Substance: MOXIFLOXACIN HYDROCHLORIDE
     Indication: PNEUMONIA
     Dosage: 400 MG, QD
     Route: 041
     Dates: start: 20180702, end: 20180703
  3. POTASSIUM CHLORIDE. [Suspect]
     Active Substance: POTASSIUM CHLORIDE
     Indication: HYPOKALAEMIA
     Dosage: 1 G, TID
     Route: 048
     Dates: start: 20180702, end: 20180704

REACTIONS (4)
  - Hallucination, auditory [Not Recovered/Not Resolved]
  - Delirium [Not Recovered/Not Resolved]
  - Hallucination, visual [Not Recovered/Not Resolved]
  - Restlessness [Not Recovered/Not Resolved]

NARRATIVE: CASE EVENT DATE: 20180702
